FAERS Safety Report 23274771 (Version 2)
Quarter: 2023Q4

REPORT INFORMATION
  Report Type: Spontaneous
  Country: US (occurrence: US)
  Receive Date: 20231208
  Receipt Date: 20231221
  Transmission Date: 20240109
  Serious: Yes (Other)
  Sender: FDA-Public Use
  Company Number: US-AUROBINDO-AUR-APL-2023-076551

PATIENT
  Age: 84 Year
  Sex: Male
  Weight: 79.37 kg

DRUGS (2)
  1. DEXTROMETHORPHAN\GUAIFENESIN [Suspect]
     Active Substance: DEXTROMETHORPHAN\GUAIFENESIN
     Indication: Viral infection
     Dosage: 1 DOSAGE FORM, TWO TIMES A DAY (NOT MORE THAN 2 TABLETS IN 24 HOURS)
     Route: 065
  2. ROBITUSSIN (GUAIFENESIN) [Concomitant]
     Active Substance: GUAIFENESIN
     Indication: Product used for unknown indication
     Dosage: UNK
     Route: 065

REACTIONS (4)
  - Choking [Unknown]
  - Product size issue [Unknown]
  - Product use complaint [Unknown]
  - Wrong technique in product usage process [Unknown]
